FAERS Safety Report 12776194 (Version 1)
Quarter: 2016Q3

REPORT INFORMATION
  Report Type: Spontaneous
  Country: US (occurrence: US)
  Receive Date: 20160923
  Receipt Date: 20160923
  Transmission Date: 20161109
  Serious: Yes (Death)
  Sender: FDA-Public Use
  Company Number: US-AMNEAL PHARMACEUTICALS-2016AMN00613

PATIENT
  Age: 64 Year
  Sex: Male
  Weight: 89.8 kg

DRUGS (15)
  1. NAPROXEN. [Suspect]
     Active Substance: NAPROXEN
     Indication: OSTEOARTHRITIS
     Dosage: UNK
     Dates: start: 20070608, end: 20090712
  2. FOLIC ACID. [Concomitant]
     Active Substance: FOLIC ACID
  3. MONTELUKAST [Concomitant]
     Active Substance: MONTELUKAST SODIUM
  4. ALLEGRA [Concomitant]
     Active Substance: FEXOFENADINE HYDROCHLORIDE
     Dosage: UNK
  5. CWENTRUM [Concomitant]
  6. THEOPHYLLINE [Concomitant]
     Active Substance: THEOPHYLLINE ANHYDROUS
  7. ACTONEL [Concomitant]
     Active Substance: RISEDRONATE SODIUM
     Dosage: UNK
  8. COLACE [Concomitant]
     Active Substance: DOCUSATE SODIUM
  9. METHOTREXATE. [Concomitant]
     Active Substance: METHOTREXATE
  10. SYNTHROID [Concomitant]
     Active Substance: LEVOTHYROXINE SODIUM
  11. CALCIFEROL [Concomitant]
     Active Substance: ERGOCALCIFEROL
     Dosage: UNK
  12. TYLENOL WITH CODIENE NO 3 [Concomitant]
  13. CITRACEL [Concomitant]
  14. PREDNISOLONE. [Concomitant]
     Active Substance: PREDNISOLONE
  15. ZESTRIL [Concomitant]
     Active Substance: LISINOPRIL

REACTIONS (1)
  - Myocardial infarction [Fatal]
